FAERS Safety Report 17797536 (Version 2)
Quarter: 2020Q2

REPORT INFORMATION
  Report Type: Spontaneous
  Country: HR (occurrence: HR)
  Receive Date: 20200518
  Receipt Date: 20200604
  Transmission Date: 20200714
  Serious: Yes (Hospitalization)
  Sender: FDA-Public Use
  Company Number: HR-GLAXOSMITHKLINE-HR2020GSK079630

PATIENT
  Age: 77 Year
  Sex: Male

DRUGS (11)
  1. CARVEDILOL. [Suspect]
     Active Substance: CARVEDILOL
     Indication: HYPERTENSION
     Dosage: 6.25 MG, QD
     Route: 048
  2. CODEINE PHOSPHATE [Interacting]
     Active Substance: CODEINE PHOSPHATE
     Indication: METASTATIC RENAL CELL CARCINOMA
  3. DABIGATRAN [Interacting]
     Active Substance: DABIGATRAN
     Indication: ATRIAL FIBRILLATION
     Dosage: 110 MG, BID
  4. LACIDIPINE [Interacting]
     Active Substance: LACIDIPINE
     Indication: HYPERTENSION
     Dosage: 4 MG, QD
     Route: 048
  5. PAZOPANIB [Interacting]
     Active Substance: PAZOPANIB
     Indication: METASTATIC RENAL CELL CARCINOMA
     Dosage: 80 MG, QD AT LEAST ONE HOUR BEFORE MEAL)
  6. VALSARTAN. [Interacting]
     Active Substance: VALSARTAN
     Indication: HYPERTENSION
     Dosage: 80 MG, QD
     Route: 048
  7. LEVOTHYROXINE. [Concomitant]
     Active Substance: LEVOTHYROXINE
     Indication: HYPOTHYROIDISM
     Dosage: 50 UG (WEEK DAYS)
  8. ATORVASTATIN [Interacting]
     Active Substance: ATORVASTATIN
     Indication: HYPOTHYROIDISM
     Dosage: 20 MG, QD
  9. CODEINE PHOSPHATE [Interacting]
     Active Substance: CODEINE PHOSPHATE
     Indication: METASTASES TO LUNG
     Dosage: 30 MG, TID
     Route: 048
  10. METFORMIN AND VILDAGLIPTIN [Interacting]
     Active Substance: METFORMIN\VILDAGLIPTIN
     Indication: TYPE 2 DIABETES MELLITUS
     Dosage: 1050 MG, BID (50 MG/1000 MG)
  11. LEVOTHYROXINE. [Concomitant]
     Active Substance: LEVOTHYROXINE
     Dosage: 75 UG (SATURDAY AND SUNDAY)

REACTIONS (11)
  - Hyperglycaemia [Recovered/Resolved]
  - Blood creatinine increased [Recovered/Resolved]
  - Blood alkaline phosphatase increased [Recovered/Resolved]
  - Blood bilirubin increased [Recovered/Resolved]
  - Drug interaction [Unknown]
  - Thirst [Recovered/Resolved]
  - Nausea [Recovered/Resolved]
  - Gamma-glutamyltransferase increased [Recovered/Resolved]
  - Blood glucose increased [Recovered/Resolved]
  - Blood urea increased [Recovered/Resolved]
  - Pollakiuria [Recovered/Resolved]
